FAERS Safety Report 17912218 (Version 2)
Quarter: 2020Q3

REPORT INFORMATION
  Report Type: Spontaneous
  Country: FI (occurrence: FI)
  Receive Date: 20200618
  Receipt Date: 20200701
  Transmission Date: 20201103
  Serious: Yes (Life-Threatening, Hospitalization)
  Sender: FDA-Public Use
  Company Number: FI-BAYER-2019-136581

PATIENT
  Age: 35 Year
  Sex: Female

DRUGS (1)
  1. JAYDESS [Suspect]
     Active Substance: LEVONORGESTREL
     Indication: CONTRACEPTION
     Dosage: 14 MCG/24HR, CONT
     Route: 015
     Dates: start: 20181105, end: 20190627

REACTIONS (6)
  - Ectopic pregnancy with contraceptive device [Unknown]
  - Haematosalpinx [Unknown]
  - Vaginal haemorrhage [None]
  - Abdominal pain lower [Unknown]
  - Pain [None]
  - Drug ineffective [None]

NARRATIVE: CASE EVENT DATE: 20181105
